FAERS Safety Report 7084473-4 (Version None)
Quarter: 2010Q4

REPORT INFORMATION
  Report Type: 
  Country: None (occurrence: None)
  Receive Date: 20101104
  Receipt Date: 20101101
  Transmission Date: 20110411
  Serious: No
  Sender: FDA-Public Use
  Company Number: US-PFIZER INC-2010139052

PATIENT
  Sex: Male
  Weight: 91 kg

DRUGS (3)
  1. NORVASC [Suspect]
     Indication: HYPERTENSION
     Dosage: 5 MG, DAILY
     Route: 048
     Dates: start: 20101101
  2. VYTORIN [Concomitant]
     Dosage: 10/20 MG, UNK
     Dates: start: 20070101
  3. ASPIRIN [Concomitant]
     Dosage: UNK
     Dates: start: 20101001

REACTIONS (1)
  - VISION BLURRED [None]
